FAERS Safety Report 5884895-0 (Version None)
Quarter: 2008Q3

REPORT INFORMATION
  Report Type: 
  Country: None (occurrence: None)
  Receive Date: 20080915
  Receipt Date: 20080915
  Transmission Date: 20090109
  Serious: Yes (Hospitalization)
  Sender: FDA-Public Use
  Company Number: None

PATIENT
  Age: 45 Year
  Sex: Female
  Weight: 94.5 kg

DRUGS (1)
  1. LOESTRIN 1.5/30 [Suspect]
     Indication: HORMONE REPLACEMENT THERAPY
     Dosage: 1 TABLET DAILY ORAL
     Route: 048

REACTIONS (1)
  - PULMONARY EMBOLISM [None]
